FAERS Safety Report 4446549-7 (Version None)
Quarter: 2004Q3

REPORT INFORMATION
  Report Type: 
  Country: None (occurrence: None)
  Receive Date: 20040902
  Receipt Date: 20040818
  Transmission Date: 20050211
  Serious: Yes (Death, Hospitalization)
  Sender: FDA-Public Use
  Company Number: EWC040840341

PATIENT
  Age: 82 Year
  Sex: Male

DRUGS (2)
  1. ZYPREXA [Suspect]
     Indication: HALLUCINATION
     Dosage: 5 MG/DAY
     Dates: start: 20040611, end: 20040620
  2. FUROSEMIDE [Concomitant]

REACTIONS (1)
  - PARKINSONISM [None]
